FAERS Safety Report 6261668-0 (Version None)
Quarter: 2009Q3

REPORT INFORMATION
  Report Type: 
  Country: None (occurrence: None)
  Receive Date: 20090707
  Receipt Date: 20090707
  Transmission Date: 20100115
  Serious: Yes (Hospitalization)
  Sender: FDA-Public Use
  Company Number: None

PATIENT
  Age: 58 Year
  Sex: Male
  Weight: 81.2 kg

DRUGS (1)
  1. PREDNISONE [Suspect]
     Indication: IDIOPATHIC URTICARIA
     Dosage: 60 MG EVERY DAY PO
     Route: 048
     Dates: start: 20090618, end: 20090624

REACTIONS (3)
  - DIABETES MELLITUS [None]
  - HYPERGLYCAEMIA [None]
  - VISION BLURRED [None]
